FAERS Safety Report 24836600 (Version 1)
Quarter: 2025Q1

REPORT INFORMATION
  Report Type: Spontaneous
  Country: US (occurrence: US)
  Receive Date: 20250113
  Receipt Date: 20250113
  Transmission Date: 20250409
  Serious: Yes (Death, Hospitalization)
  Sender: BAYER HEALTHCARE LLC
  Company Number: US-BAYER-2025A002679

PATIENT
  Age: 61 Year
  Sex: Male

DRUGS (2)
  1. ASPIRIN [Suspect]
     Active Substance: ASPIRIN
     Route: 048
  2. DIETHYLENE GLYCOL MONOETHYL ETHER [Suspect]
     Active Substance: DIETHYLENE GLYCOL MONOETHYL ETHER

REACTIONS (1)
  - Toxicity to various agents [Fatal]
